FAERS Safety Report 9815294 (Version 3)
Quarter: 2014Q1

REPORT INFORMATION
  Report Type: Report from Study
  Country: CZ (occurrence: CZ)
  Receive Date: 20140114
  Receipt Date: 20140204
  Transmission Date: 20141002
  Serious: Yes (Hospitalization)
  Sender: FDA-Public Use
  Company Number: CZ-ROCHE-1330005

PATIENT
  Age: 65 Year
  Sex: Female
  Weight: 82.8 kg

DRUGS (21)
  1. OBINUTUZUMAB [Suspect]
     Indication: DIFFUSE LARGE B-CELL LYMPHOMA
     Dosage: MOST RECENT DOSE WAS ON 18/DEC/2013 AT A DOSE VOLUME 250 ML AND CONCENTRATION 4MG/KG
     Route: 042
     Dates: start: 20131211
  2. CYCLOPHOSPHAMIDE [Suspect]
     Indication: DIFFUSE LARGE B-CELL LYMPHOMA
     Dosage: DATE OF MOST RECENT DOSE PRIOR TO SAE:11/DEC/2013
     Route: 042
     Dates: start: 20131211
  3. DOXORUBICIN [Suspect]
     Indication: DIFFUSE LARGE B-CELL LYMPHOMA
     Dosage: DATE OF MOST RECENT DOSE PRIOR TO SAE:11/DEC/2013
     Route: 042
     Dates: start: 20131211
  4. VINCRISTINE [Suspect]
     Indication: DIFFUSE LARGE B-CELL LYMPHOMA
     Dosage: DATE OF MOST RECENT DOSE PRIOR TO SAE:11/DEC/2013
     Route: 050
     Dates: start: 20131211
  5. PREDNISONE [Suspect]
     Indication: DIFFUSE LARGE B-CELL LYMPHOMA
     Dosage: DATE OF MOST RECENT DOSE PRIOR TO SAE:11/DEC/2013
     Route: 048
     Dates: start: 20131211
  6. TOLURA [Concomitant]
     Indication: HYPERTENSION
  7. AGEN (CZECH REPUBLIC) [Concomitant]
     Indication: HYPERTENSION
     Route: 065
     Dates: end: 20140109
  8. CYNT (CZECH REPUBLIC) [Concomitant]
     Indication: HYPERTENSION
  9. HYDROCHLOROTHIAZIDE [Concomitant]
     Indication: HYPERTENSION
     Route: 065
     Dates: end: 20140109
  10. LETROX [Concomitant]
     Indication: GOITRE
  11. SORTIS [Concomitant]
     Indication: HYPERLIPIDAEMIA
  12. XALATAN [Concomitant]
     Indication: GLAUCOMA
  13. HYDROCORTISON FOR INJECTION [Concomitant]
     Indication: CHILLS
     Route: 065
     Dates: start: 20131211, end: 20131211
  14. HYDROCORTISON FOR INJECTION [Concomitant]
     Indication: OROPHARYNGEAL PAIN
  15. ZOLPIDEM [Concomitant]
     Indication: INSOMNIA
     Route: 065
     Dates: start: 20131218
  16. QUAMATEL [Concomitant]
     Indication: DYSPEPSIA
     Route: 065
     Dates: start: 20131211
  17. MILURIT [Concomitant]
     Route: 065
     Dates: start: 20131211
  18. CO-TRIMOXAZOLE [Concomitant]
     Indication: INFECTION PROPHYLAXIS
     Route: 065
     Dates: start: 20131211
  19. CANESTEN [Concomitant]
     Indication: VAGINAL INFECTION
     Route: 065
     Dates: start: 201312, end: 201312
  20. PROPANORM [Concomitant]
     Indication: VENTRICULAR FIBRILLATION
  21. FRAXIPARIN [Concomitant]
     Indication: VENTRICULAR FIBRILLATION
     Route: 065
     Dates: end: 20140109

REACTIONS (1)
  - Ventricular flutter [Recovered/Resolved with Sequelae]
